FAERS Safety Report 25144737 (Version 1)
Quarter: 2025Q2

REPORT INFORMATION
  Report Type: Report from Study
  Country: US (occurrence: US)
  Receive Date: 20250401
  Receipt Date: 20250401
  Transmission Date: 20250717
  Serious: Yes (Other)
  Sender: UCB
  Company Number: US-UCBSA-2025017024

PATIENT
  Age: 33 Year
  Sex: Female

DRUGS (4)
  1. LEVETIRACETAM [Suspect]
     Active Substance: LEVETIRACETAM
     Indication: Epilepsy
  2. LACOSAMIDE [Suspect]
     Active Substance: LACOSAMIDE
     Indication: Epilepsy
  3. LORAZEPAM [Suspect]
     Active Substance: LORAZEPAM
     Indication: Epilepsy
  4. PERAMPANEL [Suspect]
     Active Substance: PERAMPANEL
     Indication: Epilepsy

REACTIONS (1)
  - Delirium [Unknown]
